FAERS Safety Report 8293155-2 (Version None)
Quarter: 2012Q2

REPORT INFORMATION
  Report Type: 
  Country: None (occurrence: None)
  Receive Date: 20120417
  Receipt Date: 20111219
  Transmission Date: 20120825
  Serious: Yes (Hospitalization)
  Sender: FDA-Public Use
  Company Number: US-ASTRAZENECA-2011SE60245

PATIENT
  Age: 52 Year
  Sex: Female

DRUGS (2)
  1. MEDICATION FOR THROAT INFECTION [Interacting]
     Indication: PHARYNGITIS
     Route: 065
  2. NEXIUM [Suspect]
     Route: 048

REACTIONS (6)
  - DRUG INEFFECTIVE [None]
  - HERNIA [None]
  - GASTRIC DISORDER [None]
  - PHARYNGITIS [None]
  - POTENTIATING DRUG INTERACTION [None]
  - WEIGHT DECREASED [None]
